FAERS Safety Report 20033471 (Version 4)
Quarter: 2021Q4

REPORT INFORMATION
  Report Type: Report from Study
  Country: DE (occurrence: DE)
  Receive Date: 20211104
  Receipt Date: 20211230
  Transmission Date: 20220303
  Serious: Yes (Death, Hospitalization, Other)
  Sender: FDA-Public Use
  Company Number: DE-BRISTOL-MYERS SQUIBB COMPANY-BMS-2021-103485

PATIENT
  Age: 72 Year
  Sex: Male
  Weight: 102 kg

DRUGS (11)
  1. NIVOLUMAB [Suspect]
     Active Substance: NIVOLUMAB
     Indication: Malignant melanoma
     Dosage: 106 MILLIGRAM
     Route: 065
     Dates: start: 20190812, end: 20190812
  2. NIVOLUMAB [Suspect]
     Active Substance: NIVOLUMAB
     Dosage: 105 MILLIGRAM
     Route: 065
     Dates: start: 20190902, end: 20190902
  3. NIVOLUMAB [Suspect]
     Active Substance: NIVOLUMAB
     Dosage: 105 MILLIGRAM
     Route: 065
     Dates: start: 20190923, end: 20190923
  4. NIVOLUMAB [Suspect]
     Active Substance: NIVOLUMAB
     Dosage: 105 MILLIGRAM
     Route: 065
     Dates: start: 20191014, end: 20191014
  5. NIVOLUMAB [Suspect]
     Active Substance: NIVOLUMAB
     Dosage: 240 MILLIGRAM, Q2WK
     Route: 042
     Dates: start: 20191104
  6. IPILIMUMAB [Suspect]
     Active Substance: IPILIMUMAB
     Indication: Malignant melanoma
     Dosage: 318 MILLIGRAM
     Route: 042
     Dates: start: 20190812, end: 20190812
  7. IPILIMUMAB [Suspect]
     Active Substance: IPILIMUMAB
     Dosage: 315 MILLIGRAM
     Route: 042
     Dates: start: 20190902, end: 20190902
  8. IPILIMUMAB [Suspect]
     Active Substance: IPILIMUMAB
     Dosage: 315 MILLIGRAM
     Route: 042
     Dates: start: 20190923, end: 20190923
  9. IPILIMUMAB [Suspect]
     Active Substance: IPILIMUMAB
     Dosage: 315 MILLIGRAM
     Route: 042
     Dates: start: 20191014, end: 20191014
  10. PREDNISOLONE [Concomitant]
     Active Substance: PREDNISOLONE
     Indication: Product used for unknown indication
     Route: 065
  11. OXYCODONE HYDROCHLORIDE [Concomitant]
     Active Substance: OXYCODONE HYDROCHLORIDE
     Indication: Product used for unknown indication
     Route: 065

REACTIONS (6)
  - Pneumonia [Fatal]
  - Contusion [Unknown]
  - Fall [Unknown]
  - Femur fracture [Unknown]
  - Prescribed underdose [Unknown]
  - Haemoglobin decreased [Unknown]

NARRATIVE: CASE EVENT DATE: 20211006
